FAERS Safety Report 8335972-6 (Version None)
Quarter: 2012Q2

REPORT INFORMATION
  Report Type: 
  Country: None (occurrence: None)
  Receive Date: 20120504
  Receipt Date: 20120502
  Transmission Date: 20120825
  Serious: No
  Sender: FDA-Public Use
  Company Number: US-PFIZER INC-2012108729

PATIENT
  Sex: Female
  Weight: 54.422 kg

DRUGS (3)
  1. XANAX [Concomitant]
     Indication: ANXIETY
     Dosage: 0.5 MG, DAILY
  2. PREDNISONE [Concomitant]
     Indication: DYSPNOEA
     Dosage: 20 MG, DAILY
  3. CHANTIX [Suspect]
     Indication: SMOKING CESSATION THERAPY
     Dosage: 0.5 MG, UNK
     Route: 048

REACTIONS (1)
  - WEIGHT DECREASED [None]
